FAERS Safety Report 4356232-4 (Version None)
Quarter: 2004Q2

REPORT INFORMATION
  Report Type: 
  Country: None (occurrence: None)
  Receive Date: 20040511
  Receipt Date: 20031112
  Transmission Date: 20050107
  Serious: Yes (Hospitalization)
  Sender: FDA-Public Use
  Company Number: FR-MERCK-0311FRA00030

PATIENT
  Age: 90 Year
  Sex: Female

DRUGS (6)
  1. ACETAMINOPHEN [Concomitant]
     Route: 048
  2. BISOPROLOL FUMARATE [Concomitant]
     Route: 048
  3. CLOPIDOGREL BISULFATE [Suspect]
     Indication: CEREBROVASCULAR DISORDER
     Route: 048
     Dates: start: 20020801, end: 20030826
  4. PAROXETINE HYDROCHLORIDE [Suspect]
     Route: 048
  5. VIOXX [Suspect]
     Indication: OSTEOARTHRITIS
     Route: 048
     Dates: start: 20020801, end: 20030826
  6. TIAPRIDE [Concomitant]
     Route: 048

REACTIONS (5)
  - ANAEMIA [None]
  - DIVERTICULUM INTESTINAL [None]
  - DRUG INTERACTION [None]
  - RECTAL HAEMORRHAGE [None]
  - TACHYCARDIA [None]
